APPROVED DRUG PRODUCT: LORAZEPAM
Active Ingredient: LORAZEPAM
Strength: 4MG/ML
Dosage Form/Route: INJECTABLE;INJECTION
Application: A074535 | Product #002
Applicant: PHARMOBEDIENT CONSULTING LLC
Approved: Sep 12, 1996 | RLD: No | RS: No | Type: DISCN